FAERS Safety Report 6983898-2 (Version None)
Quarter: 2010Q3

REPORT INFORMATION
  Report Type: 
  Country: None (occurrence: None)
  Receive Date: 20100914
  Receipt Date: 20090511
  Transmission Date: 20110219
  Serious: No
  Sender: FDA-Public Use
  Company Number: US-WYE-H08347109

PATIENT
  Age: 48 Year
  Sex: Female

DRUGS (2)
  1. PHOSPHOLINE IODIDE [Suspect]
  2. PREDNISOLONE [Concomitant]

REACTIONS (2)
  - EYE PAIN [None]
  - OCULAR HYPERAEMIA [None]
